FAERS Safety Report 6994302-2 (Version None)
Quarter: 2010Q3

REPORT INFORMATION
  Report Type: 
  Country: None (occurrence: None)
  Receive Date: 20100917
  Receipt Date: 20100909
  Transmission Date: 20110219
  Serious: Yes (Other)
  Sender: FDA-Public Use
  Company Number: US-GENENTECH-306274

PATIENT
  Sex: Female
  Weight: 88.435 kg

DRUGS (10)
  1. XOLAIR [Suspect]
     Indication: ASTHMA
     Dosage: 300 MG, Q4W
     Route: 058
     Dates: start: 20040401, end: 20100902
  2. ADVAIR DISKUS 100/50 [Concomitant]
     Indication: ASTHMA
  3. XYZAL [Concomitant]
     Indication: PRODUCT USED FOR UNKNOWN INDICATION
  4. ASMANEX TWISTHALER [Concomitant]
     Indication: ASTHMA
  5. ATARAX [Concomitant]
     Indication: PRODUCT USED FOR UNKNOWN INDICATION
  6. COUMADIN [Concomitant]
     Indication: PRODUCT USED FOR UNKNOWN INDICATION
  7. METFORMIN [Concomitant]
     Indication: PRODUCT USED FOR UNKNOWN INDICATION
  8. BUMEX [Concomitant]
     Indication: PRODUCT USED FOR UNKNOWN INDICATION
  9. ACIPHEX [Concomitant]
     Indication: PRODUCT USED FOR UNKNOWN INDICATION
  10. OXYCODONE HCL [Concomitant]
     Indication: PRODUCT USED FOR UNKNOWN INDICATION

REACTIONS (1)
  - DYSPNOEA [None]
